FAERS Safety Report 16673131 (Version 1)
Quarter: 2019Q3

REPORT INFORMATION
  Report Type: Spontaneous
  Country: US (occurrence: US)
  Receive Date: 20190806
  Receipt Date: 20190806
  Transmission Date: 20191004
  Serious: Yes (Other)
  Sender: FDA-Public Use
  Company Number: US-PFIZER INC-2019331144

PATIENT
  Age: 65 Year
  Sex: Female
  Weight: 90.26 kg

DRUGS (1)
  1. PRISTIQ EXTENDED-RELEASE [Suspect]
     Active Substance: DESVENLAFAXINE SUCCINATE
     Dosage: UNK

REACTIONS (4)
  - Chest pain [Unknown]
  - Palpitations [Unknown]
  - Suicide attempt [Unknown]
  - Suicidal ideation [Unknown]
